FAERS Safety Report 15075506 (Version 1)
Quarter: 2018Q2

REPORT INFORMATION
  Report Type: Spontaneous
  Country: US (occurrence: US)
  Receive Date: 20180627
  Receipt Date: 20180627
  Transmission Date: 20180711
  Serious: Yes (Hospitalization)
  Sender: FDA-Public Use
  Company Number: US-SAOL THERAPEUTICS-2018SAO00619

PATIENT
  Age: 49 Year
  Sex: Male
  Weight: 157.82 kg

DRUGS (5)
  1. LASIX [Concomitant]
     Active Substance: FUROSEMIDE
  2. K DUR [Concomitant]
  3. LIORESAL [Suspect]
     Active Substance: BACLOFEN
     Indication: PARESIS
  4. NEURONTIN [Concomitant]
     Active Substance: GABAPENTIN
  5. LIORESAL [Suspect]
     Active Substance: BACLOFEN
     Indication: MUSCLE SPASTICITY
     Dosage: 105 ?G, \DAY
     Route: 037
     Dates: start: 201103

REACTIONS (2)
  - Pain [Unknown]
  - Muscle spasticity [Unknown]

NARRATIVE: CASE EVENT DATE: 20180418
